FAERS Safety Report 5128061-5 (Version None)
Quarter: 2006Q4

REPORT INFORMATION
  Report Type: 
  Country: None (occurrence: None)
  Receive Date: 20061010
  Receipt Date: 20061006
  Transmission Date: 20070319
  Serious: Yes (Hospitalization)
  Sender: FDA-Public Use
  Company Number: TCI2006A03892

PATIENT
  Age: 76 Year
  Sex: Male

DRUGS (7)
  1. LEUPROLIDE ACETATE [Suspect]
     Indication: PROSTATE CANCER
     Dosage: 3.75 MG (3.75 MG, 1 IN 28 D) SUBCUTANEOUS
     Route: 058
     Dates: start: 20030805, end: 20060805
  2. CHLORMADINONE ACETATE TAB [Suspect]
     Indication: PROSTATE CANCER
     Dosage: SEE IMAGE
     Route: 048
     Dates: start: 20060801, end: 20060814
  3. CHLORMADINONE ACETATE TAB [Suspect]
     Indication: PROSTATE CANCER
     Dosage: SEE IMAGE
     Route: 048
     Dates: start: 20060815, end: 20060825
  4. BEZATOL SR (BEZAFIBRATE) [Concomitant]
  5. DORAL [Concomitant]
  6. EVAMYL (LORMETAZEPAM) [Concomitant]
  7. .. [Concomitant]

REACTIONS (5)
  - ASPARTATE AMINOTRANSFERASE INCREASED [None]
  - BILIRUBIN CONJUGATED INCREASED [None]
  - BLOOD BILIRUBIN INCREASED [None]
  - HEPATOMEGALY [None]
  - JAUNDICE [None]
